FAERS Safety Report 9991323 (Version 1)
Quarter: 2014Q1

REPORT INFORMATION
  Report Type: Report from Study
  Country: US (occurrence: US)
  Receive Date: 20140310
  Receipt Date: 20140310
  Transmission Date: 20141002
  Serious: No
  Sender: FDA-Public Use
  Company Number: US-ABBVIE-13P-163-1129469-00

PATIENT
  Age: 53 Year
  Sex: Female

DRUGS (13)
  1. HUMIRA [Suspect]
     Indication: RHEUMATOID ARTHRITIS
     Dates: start: 20130520
  2. CARVEDILOL [Concomitant]
     Indication: BLOOD PRESSURE
  3. CARVEDILOL [Concomitant]
     Indication: CARDIAC DISORDER
  4. SIMVASTATIN [Concomitant]
     Indication: BLOOD CHOLESTEROL INCREASED
     Dosage: AT NIGHT
  5. OMEPRAZOLE [Concomitant]
     Indication: HIATUS HERNIA
  6. METHOCARBAMOL [Concomitant]
     Indication: BACK PAIN
     Dosage: UP TO 3 TIMES DAILY
  7. ACYCLOVIR [Concomitant]
     Indication: HERPES VIRUS INFECTION
  8. PAROXETINE [Concomitant]
     Indication: MOOD ALTERED
  9. VITAMIN D2 [Concomitant]
     Indication: OSTEOPOROSIS PROPHYLAXIS
     Dosage: 1.25MG/50,000 UNITS
  10. FOLIC ACID [Concomitant]
     Indication: VITAMIN SUPPLEMENTATION
  11. METHOTREXATE [Concomitant]
     Indication: PRODUCT USED FOR UNKNOWN INDICATION
  12. FENTANYL [Concomitant]
     Indication: BACK PAIN
  13. TRAMADOL [Concomitant]
     Indication: PAIN
     Dosage: UP TO 3 TIMES DAILY

REACTIONS (1)
  - Injury [Recovering/Resolving]
